FAERS Safety Report 5737054-6 (Version None)
Quarter: 2008Q2

REPORT INFORMATION
  Report Type: 
  Country: None (occurrence: None)
  Receive Date: 20080512
  Receipt Date: 20080512
  Transmission Date: 20081010
  Serious: No
  Sender: FDA-Public Use
  Company Number: None

PATIENT
  Sex: Female
  Weight: 99.7913 kg

DRUGS (2)
  1. POLYETHYLENE GLYCOL [Suspect]
     Indication: CONSTIPATION
     Dosage: 17 GRAMS IN 8 OZ. LIQUID ONCE A DAY ABOUT 5X A WEEK
  2. POLYETHYLENE GLYCOL [Suspect]
     Indication: GASTROINTESTINAL DISORDER
     Dosage: 17 GRAMS IN 8 OZ. LIQUID ONCE A DAY ABOUT 5X A WEEK

REACTIONS (1)
  - ABDOMINAL PAIN UPPER [None]
